FAERS Safety Report 23127334 (Version 1)
Quarter: 2023Q4

REPORT INFORMATION
  Report Type: Spontaneous
  Country: US (occurrence: US)
  Receive Date: 20231031
  Receipt Date: 20231031
  Transmission Date: 20240110
  Serious: No
  Sender: FDA-Public Use
  Company Number: US-SANOFI-01817882

PATIENT
  Sex: Male

DRUGS (4)
  1. CABLIVI [Suspect]
     Active Substance: CAPLACIZUMAB-YHDP
     Route: 050
  2. CABLIVI [Suspect]
     Active Substance: CAPLACIZUMAB-YHDP
     Route: 050
  3. CABLIVI [Suspect]
     Active Substance: CAPLACIZUMAB-YHDP
     Route: 050
  4. CABLIVI [Suspect]
     Active Substance: CAPLACIZUMAB-YHDP
     Route: 050

REACTIONS (1)
  - Product storage error [Unknown]
